FAERS Safety Report 7439143-7 (Version None)
Quarter: 2011Q2

REPORT INFORMATION
  Report Type: 
  Country: None (occurrence: None)
  Receive Date: 20110427
  Receipt Date: 20100301
  Transmission Date: 20111010
  Serious: No
  Sender: FDA-Public Use
  Company Number: US-BAYER-201015886NA

PATIENT
  Sex: Female

DRUGS (2)
  1. PLAN B [Concomitant]
     Dosage: UNK
     Dates: start: 20100228, end: 20100228
  2. YAZ [Suspect]
     Indication: CONTRACEPTION
     Dosage: 1 DF, QD
     Route: 048
     Dates: start: 20100301

REACTIONS (1)
  - CONSTIPATION [None]
